FAERS Safety Report 13667146 (Version 1)
Quarter: 2017Q2

REPORT INFORMATION
  Report Type: Spontaneous
  Country: US (occurrence: US)
  Receive Date: 20170619
  Receipt Date: 20170619
  Transmission Date: 20170830
  Serious: No
  Sender: FDA-Public Use
  Company Number: US-BAUSCH-BL-2016-027093

PATIENT
  Age: 80 Year
  Sex: Female
  Weight: 72.64 kg

DRUGS (15)
  1. LATANOPROST. [Concomitant]
     Active Substance: LATANOPROST
     Indication: GLAUCOMA
  2. HYDROCODONE [Concomitant]
     Active Substance: HYDROCODONE
     Indication: ARTHRITIS
  3. PANTOPRAZOLE [Concomitant]
     Active Substance: PANTOPRAZOLE
     Indication: GASTROOESOPHAGEAL REFLUX DISEASE
  4. ZADITOR [Concomitant]
     Active Substance: KETOTIFEN FUMARATE
     Indication: HYPERSENSITIVITY
  5. CELEBREX [Concomitant]
     Active Substance: CELECOXIB
     Indication: ARTHRITIS
  6. RELISTOR [Suspect]
     Active Substance: METHYLNALTREXONE BROMIDE
     Indication: CONSTIPATION
     Route: 058
     Dates: start: 20161028, end: 20161028
  7. FENTANYL. [Concomitant]
     Active Substance: FENTANYL
     Indication: SPINAL COLUMN STENOSIS
  8. HYDROCODONE [Concomitant]
     Active Substance: HYDROCODONE
     Indication: SPINAL COLUMN STENOSIS
  9. LETROZOLE. [Concomitant]
     Active Substance: LETROZOLE
     Indication: LUNG NEOPLASM MALIGNANT
  10. AZELASTINE [Concomitant]
     Active Substance: AZELASTINE
     Indication: HYPERSENSITIVITY
  11. SIMVASTATIN. [Concomitant]
     Active Substance: SIMVASTATIN
     Indication: HYPERLIPIDAEMIA
  12. DOCUSATE [Concomitant]
     Active Substance: DOCUSATE
     Indication: CONSTIPATION
  13. FENTANYL. [Concomitant]
     Active Substance: FENTANYL
     Indication: ARTHRITIS
  14. TORSEMIDE. [Concomitant]
     Active Substance: TORSEMIDE
     Indication: OEDEMA
  15. NATURE-THROID [Concomitant]
     Active Substance: THYROID, PORCINE
     Indication: HYPOTHYROIDISM

REACTIONS (4)
  - Chills [Recovered/Resolved]
  - Vomiting [Recovered/Resolved]
  - Abdominal pain upper [Recovered/Resolved]
  - Pallor [Recovered/Resolved]

NARRATIVE: CASE EVENT DATE: 20161028
